FAERS Safety Report 11335753 (Version 2)
Quarter: 2015Q3

REPORT INFORMATION
  Report Type: Spontaneous
  Country: NZ (occurrence: NZ)
  Receive Date: 20150804
  Receipt Date: 20150804
  Transmission Date: 20151125
  Serious: Yes (Hospitalization, Other)
  Sender: FDA-Public Use
  Company Number: NZ-PFIZER INC-2015251812

PATIENT
  Age: 10 Year
  Sex: Male

DRUGS (1)
  1. PHENYTOIN. [Suspect]
     Active Substance: PHENYTOIN
     Indication: GENERALISED TONIC-CLONIC SEIZURE
     Dosage: UNK

REACTIONS (4)
  - Hypersensitivity [Unknown]
  - Cholestasis [Recovered/Resolved with Sequelae]
  - Rash morbilliform [Unknown]
  - Lymphadenopathy [Unknown]
